FAERS Safety Report 4541536-2 (Version None)
Quarter: 2004Q4

REPORT INFORMATION
  Report Type: 
  Country: None (occurrence: None)
  Receive Date: 20041227
  Receipt Date: 20041216
  Transmission Date: 20050328
  Serious: Yes (Death, Hospitalization)
  Sender: FDA-Public Use
  Company Number: 2004114717

PATIENT
  Age: 81 Year
  Sex: Female
  Weight: 75 kg

DRUGS (5)
  1. ATORVASTATIN (ATORVASTATIN) [Suspect]
     Indication: HYPERCHOLESTEROLAEMIA
     Dosage: 20 MG (20 MG, 1 IN 1 D), ORAL
     Route: 048
     Dates: start: 20041104, end: 20041126
  2. WARFARIN SODIUM [Concomitant]
  3. DIGOXIN [Concomitant]
  4. GABAPENTIN [Concomitant]
  5. LANSOPRAZOLE [Concomitant]

REACTIONS (1)
  - HEPATIC FAILURE [None]
